FAERS Safety Report 9203818 (Version 1)
Quarter: 2013Q2

REPORT INFORMATION
  Report Type: Spontaneous
  Country: ES (occurrence: ES)
  Receive Date: 20130402
  Receipt Date: 20130402
  Transmission Date: 20140414
  Serious: Yes (Other)
  Sender: FDA-Public Use
  Company Number: JP-ASTRAZENECA-2013SE20778

PATIENT
  Sex: Male

DRUGS (1)
  1. BLOPRESS [Suspect]
     Dosage: 32 MG/25 MG
     Route: 048
     Dates: start: 20120919, end: 20120922

REACTIONS (2)
  - Renal pain [Unknown]
  - Activities of daily living impaired [None]
